FAERS Safety Report 25711857 (Version 3)
Quarter: 2025Q4

REPORT INFORMATION
  Report Type: Spontaneous
  Country: JP (occurrence: JP)
  Receive Date: 20250821
  Receipt Date: 20251216
  Transmission Date: 20260117
  Serious: Yes (Hospitalization, Other)
  Sender: BRISTOL-MYERS SQUIBB COMPANY
  Company Number: JP-BRISTOL-MYERS SQUIBB COMPANY-2025-089935

PATIENT
  Age: 20 Year
  Sex: Male
  Weight: 44 kg

DRUGS (3)
  1. ZEPOSIA [Suspect]
     Active Substance: OZANIMOD HYDROCHLORIDE
     Indication: Colitis ulcerative
     Dosage: STARTER PACK
     Route: 048
     Dates: start: 20250527, end: 20250602
  2. ZEPOSIA [Suspect]
     Active Substance: OZANIMOD HYDROCHLORIDE
     Route: 048
     Dates: start: 20250603, end: 20250620
  3. PREDNISOLONE [Concomitant]
     Active Substance: PREDNISOLONE
     Indication: Colitis ulcerative
     Dosage: 40MG/DAY

REACTIONS (2)
  - Colitis ulcerative [Recovering/Resolving]
  - Cytomegalovirus enterocolitis [Unknown]

NARRATIVE: CASE EVENT DATE: 20250613
